FAERS Safety Report 7047166-5 (Version None)
Quarter: 2010Q4

REPORT INFORMATION
  Report Type: 
  Country: None (occurrence: None)
  Receive Date: 20101015
  Receipt Date: 20101005
  Transmission Date: 20110411
  Serious: Yes (Other)
  Sender: FDA-Public Use
  Company Number: DE-NOVOPROD-316000

PATIENT
  Sex: Female
  Weight: 83.5 kg

DRUGS (11)
  1. IDEG FLEXPEN [Suspect]
     Indication: TYPE 2 DIABETES MELLITUS
     Dosage: UNK
     Dates: start: 20090923
  2. NOVORAPID FLEXPEN [Suspect]
     Indication: TYPE 2 DIABETES MELLITUS
     Dosage: UNK
     Dates: start: 20100923
  3. ASPIRIN [Concomitant]
     Dosage: 100 MG, QD
     Route: 048
     Dates: start: 20040101
  4. SIMVASTATIN [Concomitant]
     Dosage: 40 MG, QD
     Route: 048
     Dates: start: 20040101
  5. VENLAFAXINE HCL [Concomitant]
     Dosage: 150 MG, QD
     Route: 048
     Dates: start: 20080101
  6. MUSARIL [Concomitant]
     Dosage: 50 MG, QD
     Route: 048
     Dates: start: 20080101
  7. NEBIVOLOL [Concomitant]
     Dosage: 5 MG, QD
     Route: 048
     Dates: start: 20040101
  8. SPIRO [Concomitant]
     Dosage: 50 MG, QD
     Route: 048
     Dates: start: 20040101
  9. FUROSEMID                          /00032601/ [Concomitant]
     Dosage: 40 MG, QD
     Route: 048
     Dates: start: 20040101
  10. PENTAERYTHRITOL TETRANITRATE [Concomitant]
     Dosage: 80 MG, QD
     Route: 048
     Dates: start: 20040101
  11. CELEBREX [Concomitant]
     Dosage: 200 MG, QD
     Route: 048
     Dates: start: 20050101

REACTIONS (1)
  - LOSS OF CONSCIOUSNESS [None]
